FAERS Safety Report 11871504 (Version 2)
Quarter: 2016Q1

REPORT INFORMATION
  Report Type: Spontaneous
  Country: BE (occurrence: BE)
  Receive Date: 20151228
  Receipt Date: 20160127
  Transmission Date: 20160526
  Serious: Yes (Other)
  Sender: FDA-Public Use
  Company Number: BE-ASTELLAS-2015US047996

PATIENT
  Age: 19 Year
  Sex: Female

DRUGS (2)
  1. MYCOPHENOLATE MOFETIL. [Suspect]
     Active Substance: MYCOPHENOLATE MOFETIL
     Indication: RENAL TRANSPLANT
     Dosage: UNK UNK, UNKNOWN FREQ.
     Route: 065
  2. PROGRAFT [Suspect]
     Active Substance: TACROLIMUS
     Indication: IMMUNOSUPPRESSION
     Route: 048

REACTIONS (5)
  - Meningeal disorder [Recovered/Resolved]
  - Headache [Recovered/Resolved]
  - Epstein-Barr virus infection [Recovered/Resolved]
  - Peripheral nerve paresis [Recovered/Resolved]
  - Burkitt^s lymphoma stage IV [Recovered/Resolved]
